FAERS Safety Report 6834849-2 (Version None)
Quarter: 2010Q3

REPORT INFORMATION
  Report Type: 
  Country: None (occurrence: None)
  Receive Date: 20100712
  Receipt Date: 20070807
  Transmission Date: 20110219
  Serious: Yes (Other)
  Sender: FDA-Public Use
  Company Number: US-PFIZER INC-2007033664

PATIENT
  Sex: Female
  Weight: 67.6 kg

DRUGS (13)
  1. CHANTIX [Suspect]
     Indication: SMOKING CESSATION THERAPY
     Dates: start: 20070416, end: 20070424
  2. KETOROLAC TROMETAMOL [Suspect]
     Route: 047
  3. GATIFLOXACIN [Suspect]
     Route: 047
  4. ANTIHYPERTENSIVES [Concomitant]
  5. CHOLESTEROL [Concomitant]
  6. FOLIC ACID [Concomitant]
  7. GEMFIBROZIL [Concomitant]
  8. LISINOPRIL [Concomitant]
  9. VERAPAMIL [Concomitant]
  10. MULTI-VITAMINS [Concomitant]
  11. IRON [Concomitant]
  12. VERAPAMIL - SLOW RELEASE [Concomitant]
  13. FOLIC ACID [Concomitant]

REACTIONS (2)
  - CATARACT [None]
  - EPISTAXIS [None]
